FAERS Safety Report 5149312-7 (Version None)
Quarter: 2006Q4

REPORT INFORMATION
  Report Type: 
  Country: None (occurrence: None)
  Receive Date: 20061113
  Receipt Date: 20051103
  Transmission Date: 20070319
  Serious: No
  Sender: FDA-Public Use
  Company Number: 423560

PATIENT
  Age: 40 Year
  Sex: Male

DRUGS (5)
  1. COREG [Suspect]
     Indication: DRUG USE FOR UNKNOWN INDICATION
     Dosage: 3.125MG PER DAY
     Route: 048
     Dates: start: 20051026, end: 20051102
  2. SYNTHROID [Concomitant]
  3. ALTACE [Concomitant]
  4. TRICOR [Concomitant]
  5. PRAVACHOL [Concomitant]

REACTIONS (9)
  - ABDOMINAL PAIN [None]
  - DIARRHOEA [None]
  - DIZZINESS [None]
  - INSOMNIA [None]
  - MOOD SWINGS [None]
  - NAUSEA [None]
  - PARANOIA [None]
  - VISION BLURRED [None]
  - VOMITING [None]
